FAERS Safety Report 8888945 (Version 2)
Quarter: 2012Q4

REPORT INFORMATION
  Report Type: 
  Country: JP (occurrence: JP)
  Receive Date: 20121106
  Receipt Date: 20121206
  Transmission Date: 20130627
  Serious: Yes (Other)
  Sender: FDA-Public Use
  Company Number: JP-TEVA-368425ISR

PATIENT
  Age: 18 Year

DRUGS (2)
  1. MODIODAL [Suspect]
     Indication: NARCOLEPSY
     Dosage: 100 Milligram Daily;
     Route: 048
  2. CYMBALTA [Interacting]
     Indication: NARCOLEPSY
     Dosage: 20 Milligram Daily;

REACTIONS (2)
  - Activation syndrome [Recovering/Resolving]
  - Drug interaction [Unknown]
